FAERS Safety Report 5236253-X (Version None)
Quarter: 2007Q1

REPORT INFORMATION
  Report Type: 
  Country: None (occurrence: None)
  Receive Date: 20070212
  Receipt Date: 20070131
  Transmission Date: 20070707
  Serious: Yes (Hospitalization)
  Sender: FDA-Public Use
  Company Number: CA-PFIZER INC-2007004059

PATIENT
  Sex: Male
  Weight: 77.3 kg

DRUGS (8)
  1. SU-011,248 [Suspect]
     Indication: METASTATIC RENAL CELL CARCINOMA
     Route: 048
  2. RATIO-CODEINE [Concomitant]
     Route: 048
  3. VITAMIN CAP [Concomitant]
     Route: 048
     Dates: start: 20060715
  4. OXYCODONE HYDROCHLORIDE AND ACETAMINOPHEN [Concomitant]
     Route: 048
     Dates: start: 20060714
  5. NOVOGESIC [Concomitant]
     Route: 048
     Dates: start: 20060512
  6. LIPITOR [Concomitant]
     Route: 048
     Dates: start: 19980101
  7. TRAZODONE HCL [Concomitant]
     Route: 048
     Dates: start: 20060807
  8. NORVASC [Concomitant]
     Dates: start: 20050823

REACTIONS (1)
  - PLEURAL EFFUSION [None]
